FAERS Safety Report 21110498 (Version 1)
Quarter: 2022Q3

REPORT INFORMATION
  Report Type: Report from Study
  Country: US (occurrence: US)
  Receive Date: 20220721
  Receipt Date: 20220721
  Transmission Date: 20221026
  Serious: Yes (Hospitalization)
  Sender: FDA-Public Use
  Company Number: US-Accord-269618

PATIENT
  Sex: Male

DRUGS (1)
  1. CLOZAPINE [Suspect]
     Active Substance: CLOZAPINE
     Indication: Product used for unknown indication
     Dosage: 25 MG TABLETS IN THE MORNING, 50 MG?TABLETS IN THE EVENING
     Route: 048
     Dates: end: 20220712

REACTIONS (1)
  - Treatment noncompliance [Unknown]
